FAERS Safety Report 10024119 (Version 2)
Quarter: 2014Q2

REPORT INFORMATION
  Report Type: Spontaneous
  Country: US (occurrence: US)
  Receive Date: 20140320
  Receipt Date: 20140513
  Transmission Date: 20141212
  Serious: No
  Sender: FDA-Public Use
  Company Number: US-PFIZER INC-2014076162

PATIENT
  Age: 61 Year
  Sex: Male

DRUGS (1)
  1. AZITHROMYCIN [Suspect]
     Dosage: UNK
     Dates: start: 200803

REACTIONS (6)
  - Drug hypersensitivity [Unknown]
  - Rash generalised [Unknown]
  - Rash erythematous [Unknown]
  - Rash pruritic [Unknown]
  - Urticaria [Unknown]
  - Pruritus [Unknown]
